FAERS Safety Report 15749388 (Version 1)
Quarter: 2018Q4

REPORT INFORMATION
  Report Type: Spontaneous
  Country: US (occurrence: US)
  Receive Date: 20181221
  Receipt Date: 20181221
  Transmission Date: 20190205
  Serious: Yes (Other)
  Sender: FDA-Public Use
  Company Number: US-PFIZER INC-2018520312

PATIENT
  Age: 16 Year
  Sex: Female
  Weight: 90.72 kg

DRUGS (2)
  1. SOLU-CORTEF [Suspect]
     Active Substance: HYDROCORTISONE SODIUM SUCCINATE
     Indication: ADDISON^S DISEASE
     Dosage: 100 MG, AS NEEDED
     Dates: start: 201804
  2. HYDROCORTISONE. [Concomitant]
     Active Substance: HYDROCORTISONE
     Indication: ADDISON^S DISEASE
     Dosage: 25 MG, DAILY (10 MG TABLET BY MOUTH IN THE MORNING AND AFTERNOON, THEN 5 MG  BY IN THE EVENING)
     Route: 048
     Dates: start: 201804

REACTIONS (3)
  - Addison^s disease [Recovered/Resolved with Sequelae]
  - Disease recurrence [Recovered/Resolved with Sequelae]
  - Product formulation issue [Unknown]

NARRATIVE: CASE EVENT DATE: 201811
